FAERS Safety Report 6493434-5 (Version None)
Quarter: 2009Q4

REPORT INFORMATION
  Report Type: 
  Country: None (occurrence: None)
  Receive Date: 20091214
  Receipt Date: 20091204
  Transmission Date: 20100525
  Serious: Yes (Hospitalization)
  Sender: FDA-Public Use
  Company Number: NL-MEDIMMUNE-MEDI-0009823

PATIENT
  Sex: Female
  Weight: 2.42 kg

DRUGS (1)
  1. SYNAGIS [Suspect]
     Dates: start: 20091111, end: 20091111

REACTIONS (1)
  - PERTUSSIS [None]
